FAERS Safety Report 8182752-0 (Version None)
Quarter: 2012Q1

REPORT INFORMATION
  Report Type: 
  Country: None (occurrence: None)
  Receive Date: 20120305
  Receipt Date: 20120223
  Transmission Date: 20120608
  Serious: Yes (Hospitalization)
  Sender: FDA-Public Use
  Company Number: US-BAYER-2011-076043

PATIENT
  Age: 27 Year
  Sex: Female
  Weight: 107 kg

DRUGS (15)
  1. ASCORBIC ACID [Concomitant]
  2. CIPROFLOXACIN [Concomitant]
     Dosage: UNK
     Dates: start: 20080801
  3. FERROUS GLUCONATE [Concomitant]
  4. KETOCONAZOLE [Concomitant]
     Indication: TINEA INFECTION
     Dosage: UNK
     Route: 061
     Dates: start: 20081103, end: 20081120
  5. COLACE [Concomitant]
  6. YAZ [Suspect]
     Indication: CONTRACEPTION
     Dosage: UNK
     Dates: start: 20070501, end: 20081120
  7. VITAMIN E [Concomitant]
  8. FERRLECIT [Concomitant]
  9. YAZ [Suspect]
     Indication: ACNE
  10. DICLOFENAC POTASSIUM [Concomitant]
     Dosage: UNK
     Dates: start: 20080801
  11. ACETAMINOPHEN [Concomitant]
  12. VITAMIN B-12 [Concomitant]
  13. YAZ [Suspect]
     Indication: PREMENSTRUAL SYNDROME
  14. FLUCONAZOLE [Concomitant]
     Dosage: UNK
     Dates: start: 20080801
  15. MULTI-VITAMIN [Concomitant]

REACTIONS (5)
  - PULMONARY EMBOLISM [None]
  - DEEP VEIN THROMBOSIS [None]
  - PAIN [None]
  - MENTAL DISORDER [None]
  - INJURY [None]
